FAERS Safety Report 8480346-0 (Version None)
Quarter: 2012Q2

REPORT INFORMATION
  Report Type: 
  Country: None (occurrence: None)
  Receive Date: 20120630
  Receipt Date: 20120620
  Transmission Date: 20120825
  Serious: Yes (Hospitalization)
  Sender: FDA-Public Use
  Company Number: DE-TEVA-345230GER

PATIENT
  Sex: Female
  Weight: 96 kg

DRUGS (8)
  1. PACLITAXEL [Suspect]
     Indication: BREAST CANCER
     Route: 042
  2. ALIZAPRIDE [Concomitant]
     Indication: PREMEDICATION
     Dates: start: 20120402
  3. AVASTIN [Suspect]
     Indication: BREAST CANCER
     Route: 042
  4. CLEMASTINE [Concomitant]
     Indication: PREMEDICATION
     Dosage: 2 MILLIGRAM;
     Dates: start: 20120402
  5. RANITIDINE HCL [Concomitant]
     Indication: PREMEDICATION
     Dates: start: 20120402
  6. DOXORUBICIN HCL [Suspect]
     Indication: BREAST CANCER
     Route: 042
     Dates: start: 20120402
  7. CARBOPLATIN [Suspect]
     Indication: BREAST CANCER
     Route: 042
     Dates: start: 20120402
  8. DEXAMETHASONE [Suspect]
     Indication: PREMEDICATION
     Dosage: 12 MILLIGRAM;
     Dates: start: 20120402

REACTIONS (1)
  - THROMBOSIS [None]
